FAERS Safety Report 23667232 (Version 1)
Quarter: 2024Q1

REPORT INFORMATION
  Report Type: Spontaneous
  Country: NO (occurrence: NO)
  Receive Date: 20240325
  Receipt Date: 20240325
  Transmission Date: 20240410
  Serious: Yes (Other)
  Sender: FDA-Public Use
  Company Number: None

PATIENT

DRUGS (1)
  1. DICLOFENAC [Suspect]
     Active Substance: DICLOFENAC
     Indication: Cholelithiasis
     Dosage: 50 MG, TID (Q8H)

REACTIONS (2)
  - Gastric ulcer [Recovering/Resolving]
  - Pain [Unknown]
